FAERS Safety Report 20377602 (Version 1)
Quarter: 2022Q1

REPORT INFORMATION
  Report Type: Spontaneous
  Country: DE (occurrence: DE)
  Receive Date: 20220126
  Receipt Date: 20220126
  Transmission Date: 20220423
  Serious: Yes (Other)
  Sender: FDA-Public Use
  Company Number: DE-SAMSUNG BIOEPIS-SB-2022-01645

PATIENT
  Age: 47 Year
  Sex: Male

DRUGS (6)
  1. TRASTUZUMAB [Suspect]
     Active Substance: TRASTUZUMAB
     Indication: Malignant sweat gland neoplasm
     Dosage: UNKNOWN
     Route: 065
     Dates: start: 20180430, end: 20181203
  2. TRASTUZUMAB [Suspect]
     Active Substance: TRASTUZUMAB
     Dosage: UNKNOWN, MAINTENANCE THERAPY
     Route: 065
     Dates: start: 20181210, end: 20201123
  3. TRASTUZUMAB [Suspect]
     Active Substance: TRASTUZUMAB
     Dosage: UNKNOWN
     Route: 065
     Dates: start: 20201207, end: 20210302
  4. TRASTUZUMAB [Suspect]
     Active Substance: TRASTUZUMAB
     Dosage: UNKNOWN, MAINTENANCE THERAPY
     Route: 065
     Dates: start: 20210323
  5. DOCETAXEL [Concomitant]
     Active Substance: DOCETAXEL
     Indication: Malignant sweat gland neoplasm
     Dosage: UNKNOWN
     Route: 065
     Dates: start: 20180430, end: 20181203
  6. DOCETAXEL [Concomitant]
     Active Substance: DOCETAXEL
     Dosage: UNKNOWN
     Route: 065
     Dates: start: 20201207, end: 20210302

REACTIONS (2)
  - Malignant sweat gland neoplasm [Recovering/Resolving]
  - Off label use [Unknown]

NARRATIVE: CASE EVENT DATE: 20201101
